FAERS Safety Report 7645449-9 (Version None)
Quarter: 2011Q3

REPORT INFORMATION
  Report Type: 
  Country: None (occurrence: None)
  Receive Date: 20110729
  Receipt Date: 20110727
  Transmission Date: 20111222
  Serious: Yes (Other)
  Sender: FDA-Public Use
  Company Number: JP-PFIZER INC-2011136004

PATIENT
  Age: 91 Year
  Sex: Male

DRUGS (9)
  1. SELBEX [Concomitant]
     Dosage: UNK
  2. SERMION [Concomitant]
     Dosage: UNK
  3. ASPARA K [Concomitant]
     Dosage: UNK
  4. LANSOPRAZOLE [Concomitant]
     Dosage: UNK
  5. LYRICA [Suspect]
     Indication: CENTRAL PAIN SYNDROME
     Dosage: 150 MG/DAY
     Route: 048
  6. LYRICA [Suspect]
  7. YOKUKAN-SAN [Concomitant]
     Dosage: UNK
  8. MUCODYNE [Concomitant]
     Dosage: UNK
  9. LASIX [Concomitant]
     Dosage: UNK

REACTIONS (1)
  - PANCYTOPENIA [None]
